FAERS Safety Report 19931635 (Version 1)
Quarter: 2021Q4

REPORT INFORMATION
  Report Type: Spontaneous
  Country: CN (occurrence: CN)
  Receive Date: 20211007
  Receipt Date: 20211007
  Transmission Date: 20220303
  Serious: Yes (Hospitalization, Other)
  Sender: FDA-Public Use
  Company Number: CN-EISAI MEDICAL RESEARCH-EC-2021-100810

PATIENT
  Age: 37 Year
  Sex: Female
  Weight: 50.6 kg

DRUGS (1)
  1. LENVIMA [Suspect]
     Active Substance: LENVATINIB
     Indication: Hepatic cancer metastatic
     Route: 048
     Dates: start: 20210831, end: 20210919

REACTIONS (4)
  - Generalised oedema [Recovering/Resolving]
  - Ascites [Recovering/Resolving]
  - Pneumonia [Recovering/Resolving]
  - Proteinuria [Recovering/Resolving]

NARRATIVE: CASE EVENT DATE: 20210917
